FAERS Safety Report 17000097 (Version 1)
Quarter: 2019Q4

REPORT INFORMATION
  Report Type: Spontaneous
  Country: US (occurrence: US)
  Receive Date: 20191106
  Receipt Date: 20191106
  Transmission Date: 20200122
  Serious: Yes (Other)
  Sender: FDA-Public Use
  Company Number: US-AMNEAL PHARMACEUTICALS-2019-IPXL-01676

PATIENT
  Age: 78 Year
  Sex: Male
  Weight: 76 kg

DRUGS (8)
  1. RYTARY [Suspect]
     Active Substance: CARBIDOPA\LEVODOPA
     Indication: PARKINSON^S DISEASE
     Dosage: UNK
     Route: 048
     Dates: start: 201908, end: 2019
  2. RYTARY [Suspect]
     Active Substance: CARBIDOPA\LEVODOPA
     Dosage: 4 CAPSULES, TID
     Route: 048
     Dates: start: 20190808, end: 20191014
  3. MYRBETRIQ [Concomitant]
     Active Substance: MIRABEGRON
     Indication: BLADDER DISORDER
     Dosage: 50 MILLIGRAM, EVENING
     Route: 065
  4. TRIAMTERENE/HYDROCHLOROTHIAZIDE [Concomitant]
     Active Substance: HYDROCHLOROTHIAZIDE\TRIAMTERENE
     Indication: PRODUCT USED FOR UNKNOWN INDICATION
     Dosage: 37.5MG-25MG, 1 TABLETS, MORNING
     Route: 065
  5. RYTARY [Suspect]
     Active Substance: CARBIDOPA\LEVODOPA
     Dosage: 3 CAPSULES, TID
     Route: 048
     Dates: start: 2019, end: 2019
  6. RYTARY [Suspect]
     Active Substance: CARBIDOPA\LEVODOPA
     Dosage: 3 CAPSULES, QID
     Route: 048
     Dates: start: 20190906
  7. PRAMIPEXOLE. [Concomitant]
     Active Substance: PRAMIPEXOLE
     Indication: PARKINSON^S DISEASE
     Dosage: 0.25MG, 3 TABLETS, DAILY
     Route: 065
  8. TAMSULOSIN [Concomitant]
     Active Substance: TAMSULOSIN
     Indication: PRODUCT USED FOR UNKNOWN INDICATION
     Dosage: 0.4 MILLIGRAM, BID (IN THE MORNING AND NIGHT)
     Route: 065

REACTIONS (6)
  - Intraocular pressure increased [Recovering/Resolving]
  - Therapeutic response shortened [Not Recovered/Not Resolved]
  - Diplopia [Recovering/Resolving]
  - Hallucination [Unknown]
  - Balance disorder [Recovering/Resolving]
  - Dyskinesia [Recovering/Resolving]

NARRATIVE: CASE EVENT DATE: 201908
